FAERS Safety Report 17545313 (Version 2)
Quarter: 2020Q3

REPORT INFORMATION
  Report Type: Spontaneous
  Country: FR (occurrence: FR)
  Receive Date: 20200316
  Receipt Date: 20200709
  Transmission Date: 20201102
  Serious: Yes (Other)
  Sender: FDA-Public Use
  Company Number: FR-PFIZER INC-2020107630

PATIENT
  Age: 38 Year
  Sex: Female
  Weight: 53 kg

DRUGS (4)
  1. ENDOXAN [Concomitant]
     Active Substance: CYCLOPHOSPHAMIDE
     Dosage: 980 MG, EVERY 3 WEEKS
     Dates: start: 20191107, end: 20200109
  2. DOXORUBICINE [Concomitant]
     Active Substance: DOXORUBICIN
     Dosage: 98 MG, EVERY 3 WEEKS
     Route: 042
     Dates: start: 20191107, end: 20200109
  3. TRASTUZUMAB. [Suspect]
     Active Substance: TRASTUZUMAB
     Indication: BREAST CANCER
     Dosage: 420 MG, 1X/DAY
     Route: 042
     Dates: start: 20200130
  4. PACLITAXEL. [Suspect]
     Active Substance: PACLITAXEL
     Indication: BREAST CANCER
     Dosage: 126 MG, 1X/DAY
     Route: 042
     Dates: start: 20200130

REACTIONS (1)
  - Hepatocellular injury [Not Recovered/Not Resolved]

NARRATIVE: CASE EVENT DATE: 20200205
